FAERS Safety Report 24203663 (Version 7)
Quarter: 2024Q4

REPORT INFORMATION
  Report Type: Report from Study
  Country: CA (occurrence: CA)
  Receive Date: 20240813
  Receipt Date: 20241228
  Transmission Date: 20250115
  Serious: Yes (Other)
  Sender: JOHNSON AND JOHNSON
  Company Number: CA-JNJFOC-20240819459

PATIENT
  Age: 14 Year
  Sex: Female
  Weight: 62 kg

DRUGS (11)
  1. REMICADE [Suspect]
     Active Substance: INFLIXIMAB
     Indication: Crohn^s disease
     Dosage: EXPIRY DATE: 30-NOV-2026
     Route: 041
     Dates: start: 20200218
  2. REMICADE [Suspect]
     Active Substance: INFLIXIMAB
     Dosage: INFUSION/INJECTION - 51
     Route: 041
     Dates: start: 20240806
  3. REMICADE [Suspect]
     Active Substance: INFLIXIMAB
     Dosage: INFUSION/INJECTION - 52
     Route: 041
  4. REMICADE [Suspect]
     Active Substance: INFLIXIMAB
     Route: 041
  5. REMICADE [Suspect]
     Active Substance: INFLIXIMAB
     Dosage: 4 NUMBER OF UNITS INVOLVED IN THIS COMPLAINT
     Route: 041
  6. NEXPLANON [Suspect]
     Active Substance: ETONOGESTREL
     Indication: Product used for unknown indication
     Route: 065
  7. CONCERTA [Concomitant]
     Active Substance: METHYLPHENIDATE HYDROCHLORIDE
     Indication: Product used for unknown indication
  8. VARIVAX [Concomitant]
     Active Substance: VARICELLA-ZOSTER VIRUS STRAIN OKA/MERCK LIVE ANTIGEN
     Indication: Immunisation
     Dates: start: 20231116, end: 20231116
  9. VICKS DAYQUIL [Concomitant]
     Active Substance: DEXTROMETHORPHAN HYDROBROMIDE\GUAIFENESIN
     Indication: Product used for unknown indication
  10. ERGOCALCIFEROL [Concomitant]
     Active Substance: ERGOCALCIFEROL
  11. IRON [Concomitant]
     Active Substance: IRON

REACTIONS (12)
  - Surgery [Recovered/Resolved]
  - Nephrolithiasis [Recovered/Resolved]
  - Urinary tract infection [Recovered/Resolved]
  - Abdominal pain [Recovered/Resolved]
  - Pollakiuria [Recovered/Resolved]
  - Menstruation irregular [Not Recovered/Not Resolved]
  - Diarrhoea [Unknown]
  - Food poisoning [Recovered/Resolved]
  - Oropharyngeal pain [Recovering/Resolving]
  - Productive cough [Recovering/Resolving]
  - Oral mucosal eruption [Unknown]
  - Exposure to communicable disease [Unknown]

NARRATIVE: CASE EVENT DATE: 20240701
